FAERS Safety Report 16184217 (Version 1)
Quarter: 2019Q2

REPORT INFORMATION
  Report Type: Spontaneous
  Country: US (occurrence: US)
  Receive Date: 20190411
  Receipt Date: 20190411
  Transmission Date: 20190711
  Serious: No
  Sender: FDA-Public Use
  Company Number: US-ALKEM LABORATORIES LIMITED-US-ALKEM-2018-10940

PATIENT
  Age: 32 Year
  Sex: Female

DRUGS (2)
  1. ATAZANAVIR-RITONAVIR [Suspect]
     Active Substance: ATAZANAVIR\RITONAVIR
     Indication: ANTIRETROVIRAL THERAPY
     Dosage: UNK
     Route: 065
  2. QUETIAPINE FUMARATE. [Suspect]
     Active Substance: QUETIAPINE FUMARATE
     Indication: PROPHYLAXIS
     Dosage: UNK
     Route: 065

REACTIONS (3)
  - Sedation [Recovered/Resolved]
  - Drug interaction [Unknown]
  - Confusional state [Recovered/Resolved]
